FAERS Safety Report 6988726-7 (Version None)
Quarter: 2010Q3

REPORT INFORMATION
  Report Type: 
  Country: None (occurrence: None)
  Receive Date: 20100916
  Receipt Date: 20100907
  Transmission Date: 20110219
  Serious: Yes (Death, Hospitalization)
  Sender: FDA-Public Use
  Company Number: US-JNJFOC-20100700323

PATIENT
  Sex: Male
  Weight: 81.65 kg

DRUGS (7)
  1. ST. JOSEPH ENTERIC COATED [Suspect]
     Indication: PROPHYLAXIS
     Route: 048
  2. LEVOTHYROXINE [Concomitant]
     Indication: PRODUCT USED FOR UNKNOWN INDICATION
     Route: 048
  3. LISINOPRIL [Concomitant]
     Indication: PRODUCT USED FOR UNKNOWN INDICATION
     Route: 048
  4. OXYCODONE HCL [Concomitant]
     Indication: BACK PAIN
     Dosage: 1-2 DAILY
     Route: 048
  5. LASIX [Concomitant]
  6. ALDACTONE [Concomitant]
  7. TYLENOL [Concomitant]

REACTIONS (3)
  - DEATH [None]
  - NAUSEA [None]
  - OESOPHAGEAL VARICES HAEMORRHAGE [None]
